FAERS Safety Report 9949438 (Version 1)
Quarter: 2014Q1

REPORT INFORMATION
  Report Type: Spontaneous
  Country: JP (occurrence: JP)
  Receive Date: 20140304
  Receipt Date: 20140304
  Transmission Date: 20141002
  Serious: Yes (Death)
  Sender: FDA-Public Use
  Company Number: JP-ROCHE-1356150

PATIENT
  Age: 49 Year
  Sex: Male

DRUGS (7)
  1. TAMIFLU [Suspect]
     Indication: PRODUCT USED FOR UNKNOWN INDICATION
     Route: 048
  2. DEPAKENE [Concomitant]
     Route: 065
  3. RISPERIDONE [Concomitant]
     Route: 065
  4. LEVOTOMIN [Concomitant]
  5. TASMOLIN [Concomitant]
     Route: 065
  6. ROHYPNOL [Concomitant]
     Route: 065
  7. LENDORMIN [Concomitant]
     Route: 065

REACTIONS (2)
  - Pneumonia [Fatal]
  - Respiratory failure [Fatal]
